FAERS Safety Report 14541791 (Version 4)
Quarter: 2019Q4

REPORT INFORMATION
  Report Type: Spontaneous
  Country: US (occurrence: US)
  Receive Date: 20180216
  Receipt Date: 20191220
  Transmission Date: 20200122
  Serious: Yes (Death, Hospitalization)
  Sender: FDA-Public Use
  Company Number: US-JNJFOC-20180222276

PATIENT
  Age: 72 Year
  Sex: Female

DRUGS (2)
  1. XARELTO [Suspect]
     Active Substance: RIVAROXABAN
     Indication: THROMBOSIS
     Dosage: VARYING DOSES OF 15 MG, 20 MG AND 50 MG TWICE DAILY
     Route: 048
     Dates: start: 20140925, end: 20141010
  2. XARELTO [Suspect]
     Active Substance: RIVAROXABAN
     Indication: PULMONARY EMBOLISM

REACTIONS (7)
  - Haemorrhage [Recovered/Resolved]
  - Pulmonary embolism [Fatal]
  - International normalised ratio increased [Recovering/Resolving]
  - Respiratory failure [Fatal]
  - Off label use [Unknown]
  - Myocardial infarction [Fatal]
  - Product prescribing error [Unknown]

NARRATIVE: CASE EVENT DATE: 20140925
